FAERS Safety Report 9112568 (Version 2)
Quarter: 2013Q1

REPORT INFORMATION
  Report Type: Spontaneous
  Country: JP (occurrence: JP)
  Receive Date: 20130211
  Receipt Date: 20130306
  Transmission Date: 20140127
  Serious: Yes (Hospitalization, Other)
  Sender: FDA-Public Use
  Company Number: JP-OTSUKA-JP-2013-10254

PATIENT
  Age: 58 Year
  Sex: Male

DRUGS (2)
  1. SAMSCA [Suspect]
     Indication: CARDIAC FAILURE CONGESTIVE
     Dosage: 15 MG MILLIGRAM(S), DAILY DOSE
     Route: 048
  2. CARPERITIDE [Concomitant]
     Dosage: UNK

REACTIONS (3)
  - Blood sodium increased [Recovering/Resolving]
  - Polyuria [Unknown]
  - Gastroenteritis [Unknown]
